FAERS Safety Report 4709509-4 (Version None)
Quarter: 2005Q3

REPORT INFORMATION
  Report Type: 
  Country: None (occurrence: None)
  Receive Date: 20050706
  Receipt Date: 20050616
  Transmission Date: 20060218
  Serious: Yes (Life-Threatening)
  Sender: FDA-Public Use
  Company Number: 9904414

PATIENT
  Age: 48 Year
  Sex: Male
  Weight: 67 kg

DRUGS (3)
  1. AMLODIPINE [Suspect]
     Indication: HYPERTENSION
     Dosage: 10 MG (10 MG, 1 IN 1 D), ORAL
     Route: 048
     Dates: start: 19980624
  2. PERINDOPRIL         (PERINDOPRIL) [Suspect]
     Indication: HYPERTENSION
     Dosage: 8 G (4 MG, 2 IN 1 D), ORAL
     Route: 048
     Dates: start: 19980924, end: 19990128
  3. PLACEBO (PLACEBO) [Suspect]
     Indication: HYPERLIPIDAEMIA
     Dosage: 0 MG (0 MG, 1 IN 1 D), ORAL
     Route: 048
     Dates: start: 19980624, end: 20021218

REACTIONS (2)
  - DYSPNOEA [None]
  - LARYNGEAL OEDEMA [None]
